FAERS Safety Report 14297281 (Version 2)
Quarter: 2018Q4

REPORT INFORMATION
  Report Type: Spontaneous
  Country: US (occurrence: US)
  Receive Date: 20171218
  Receipt Date: 20181123
  Transmission Date: 20190204
  Serious: No
  Sender: FDA-Public Use
  Company Number: US-PFIZER INC-2017534100

PATIENT
  Age: 47 Year
  Sex: Female
  Weight: 82 kg

DRUGS (9)
  1. DOCETAXEL SANOFI [Suspect]
     Active Substance: DOCETAXEL
     Indication: BREAST CANCER FEMALE
     Dosage: 142 MG, CYCLIC (6 CYCLES EVERY 3 WEEKS)
     Dates: start: 20130816, end: 20131205
  2. NEUPOGEN [Concomitant]
     Active Substance: FILGRASTIM
     Dosage: UNK
  3. TAXOTERE [Concomitant]
     Active Substance: DOCETAXEL
     Indication: CHEMOTHERAPY
     Dosage: UNK
  4. DOXIL [Concomitant]
     Active Substance: DOXORUBICIN HYDROCHLORIDE
     Indication: CHEMOTHERAPY
     Dosage: UNK
  5. ADRIAMYCIN [Concomitant]
     Active Substance: DOXORUBICIN HYDROCHLORIDE
     Indication: CHEMOTHERAPY
     Dosage: UNK
  6. NEOSAR [Concomitant]
     Active Substance: CYCLOPHOSPHAMIDE
     Indication: CHEMOTHERAPY
     Dosage: UNK
  7. TAMOXIFEN [Concomitant]
     Active Substance: TAMOXIFEN
     Indication: HORMONE THERAPY
     Dosage: UNK
     Dates: start: 201404, end: 2015
  8. DOCETAXEL. [Suspect]
     Active Substance: DOCETAXEL
     Indication: BREAST CANCER FEMALE
     Dosage: 142 MG, CYCLIC (6 CYCLES EVERY 3 WEEKS)
     Dates: start: 20130816, end: 20131205
  9. HCTZ [Concomitant]
     Active Substance: HYDROCHLOROTHIAZIDE
     Dosage: UNK
     Dates: start: 2010

REACTIONS (5)
  - Hair colour changes [Not Recovered/Not Resolved]
  - Alopecia [Recovering/Resolving]
  - Madarosis [Not Recovered/Not Resolved]
  - Hair texture abnormal [Not Recovered/Not Resolved]
  - Hair disorder [Not Recovered/Not Resolved]

NARRATIVE: CASE EVENT DATE: 201406
